FAERS Safety Report 4395721-3 (Version None)
Quarter: 2004Q3

REPORT INFORMATION
  Report Type: 
  Country: None (occurrence: None)
  Receive Date: 20040708
  Receipt Date: 20040625
  Transmission Date: 20050211
  Serious: Yes (Other)
  Sender: FDA-Public Use
  Company Number: 2003-05418

PATIENT
  Age: 39 Year
  Sex: Female
  Weight: 48.5349 kg

DRUGS (9)
  1. VIREAD [Suspect]
     Indication: HIV INFECTION
     Dosage: 300 MG, 1 IN 1 D, ORAL
     Route: 048
     Dates: start: 20010101
  2. KALETRA [Concomitant]
  3. 3TC (LAMIVUDINE) [Concomitant]
  4. DAPSONE [Concomitant]
  5. GEMFIBROZIL [Concomitant]
  6. PROCRIT (ERYTHROPOIETIN) [Concomitant]
  7. IRON (IRON) [Concomitant]
  8. LAMICTAL [Concomitant]
  9. K-PHOS (POTASSIUM PHOSPHATE MONOBASIC) [Concomitant]

REACTIONS (6)
  - FANCONI SYNDROME ACQUIRED [None]
  - HYPOCALCAEMIA [None]
  - HYPOPHOSPHATAEMIA [None]
  - OSTEOMALACIA [None]
  - OSTEOPOROSIS [None]
  - STRESS FRACTURE [None]
